FAERS Safety Report 20822086 (Version 1)
Quarter: 2022Q2

REPORT INFORMATION
  Report Type: Spontaneous
  Country: US (occurrence: US)
  Receive Date: 20220512
  Receipt Date: 20220512
  Transmission Date: 20220720
  Serious: No
  Sender: FDA-Public Use
  Company Number: US-PFIZER INC-202200506736

PATIENT
  Age: 62 Year
  Sex: Male

DRUGS (5)
  1. XELJANZ XR [Suspect]
     Active Substance: TOFACITINIB CITRATE
     Indication: Rheumatoid arthritis
     Dosage: 11 MG, DAILY
     Route: 048
     Dates: start: 20210831
  2. VARENICLINE [Concomitant]
     Active Substance: VARENICLINE
     Dosage: UNK
  3. CELEBREX [Concomitant]
     Active Substance: CELECOXIB
     Dosage: UNK
  4. LEFLUNOMIDE [Concomitant]
     Active Substance: LEFLUNOMIDE
     Dosage: UNK
  5. COVID 19 REGENERON INFUSION [Concomitant]
     Dosage: UNK
     Dates: start: 20210824

REACTIONS (5)
  - Rhinorrhoea [Recovered/Resolved]
  - Illness [Recovered/Resolved]
  - Diarrhoea [Recovered/Resolved]
  - Nasal congestion [Recovered/Resolved]
  - Oropharyngeal pain [Recovered/Resolved]

NARRATIVE: CASE EVENT DATE: 20220301
